FAERS Safety Report 18668962 (Version 1)
Quarter: 2020Q4

REPORT INFORMATION
  Report Type: Spontaneous
  Country: US (occurrence: US)
  Receive Date: 20201224
  Receipt Date: 20201224
  Transmission Date: 20210114
  Serious: Yes (Hospitalization)
  Sender: FDA-Public Use
  Company Number: None

PATIENT
  Sex: Female
  Weight: 59.9 kg

DRUGS (2)
  1. DEXMETHASONE [Suspect]
     Active Substance: DEXAMETHASONE
     Dates: end: 20201215
  2. DARATUMUMAB [Suspect]
     Active Substance: DARATUMUMAB
     Dates: end: 20201215

REACTIONS (4)
  - Urticaria [None]
  - Infusion related reaction [None]
  - Unresponsive to stimuli [None]
  - Dyspnoea [None]

NARRATIVE: CASE EVENT DATE: 20201215
